FAERS Safety Report 9206504 (Version 2)
Quarter: 2013Q2

REPORT INFORMATION
  Report Type: Report from Study
  Country: US (occurrence: US)
  Receive Date: 20130403
  Receipt Date: 20130527
  Transmission Date: 20140414
  Serious: Yes (Other)
  Sender: FDA-Public Use
  Company Number: PHEH2013US007459

PATIENT
  Age: 80 Year
  Sex: Female
  Weight: 42.63 kg

DRUGS (15)
  1. AFINITOR [Suspect]
     Indication: BREAST CANCER METASTATIC
     Dosage: 10 MG, DAILY
     Route: 048
     Dates: end: 20130319
  2. AROMASIN [Suspect]
     Indication: BREAST CANCER METASTATIC
     Dosage: UNK
     Dates: end: 20130319
  3. AROMASIN [Suspect]
     Dosage: UNK
  4. ASPIRIN [Concomitant]
     Dosage: 325 MG, DAILY
     Route: 048
  5. LEVOTHYROXINE SODIUM [Concomitant]
     Dosage: 100 UG, DAILY
     Route: 048
  6. PROCHLORPERAZINE MALEATE [Concomitant]
     Indication: NAUSEA
     Dosage: 10 MG, Q4H
     Route: 048
  7. PROCHLORPERAZINE MALEATE [Concomitant]
     Indication: VOMITING
  8. TRIAZOLAM [Concomitant]
     Dosage: 0.25 MG, EVERY NIGHT
     Route: 048
  9. BUTALBITAL W/ASPIRIN,CAFFEINE [Concomitant]
     Dosage: 1 DF, Q4H
     Route: 048
  10. LISINOPRIL [Concomitant]
     Dosage: 20 MG, BID
     Route: 048
  11. VENTOLIN HFA [Concomitant]
     Dosage: 2 DF, Q4H
  12. CARVEDILOL [Concomitant]
     Dosage: 25 MG, DAILY
     Route: 048
  13. SUMATRIPTAN SUCCINATE [Concomitant]
     Indication: MIGRAINE
     Dosage: 100 MG
     Route: 048
  14. LEVOFLOXACIN [Concomitant]
     Dosage: 750 MG, QD
     Route: 048
  15. VALTREX [Concomitant]

REACTIONS (16)
  - Toxicity to various agents [Unknown]
  - Lower limb fracture [Unknown]
  - Palmar-plantar erythrodysaesthesia syndrome [Unknown]
  - Local swelling [Unknown]
  - Burning sensation [Unknown]
  - Skin discolouration [Unknown]
  - Erythema [Unknown]
  - Metastases to bone [Unknown]
  - Metastases to skin [Unknown]
  - Breast cancer metastatic [Unknown]
  - Malignant neoplasm progression [Unknown]
  - Drug eruption [Unknown]
  - Stomatitis [Unknown]
  - Rash [Unknown]
  - Hypertension [Unknown]
  - Malaise [Unknown]
